FAERS Safety Report 4591293-9 (Version None)
Quarter: 2005Q1

REPORT INFORMATION
  Report Type: 
  Country: None (occurrence: None)
  Receive Date: 20050217
  Receipt Date: 20050210
  Transmission Date: 20050727
  Serious: Yes (Death, Life-Threatening, Hospitalization)
  Sender: FDA-Public Use
  Company Number: F01200500240

PATIENT
  Age: 56 Year
  Sex: Female

DRUGS (5)
  1. OXALIPLATIN - SOLUTION - 85 MG/M2 [Suspect]
     Indication: COLORECTAL CANCER
     Dosage: 85 MG/M2 Q2W - INTRAVENOUS NOS
     Route: 042
     Dates: start: 20020711, end: 20020711
  2. FLUOROURACIL [Suspect]
     Dosage: (400 MG/M2 AS BOLUS FOLLOWED BY 600 MG/M2 IV OVER 22 HOURS, ON D1-D2 Q2W) - INTRAVENOUS NOS
     Route: 042
     Dates: start: 20020711, end: 20020712
  3. LEUCOVORIN CALCIUM [Suspect]
     Dosage: (200 MG/M2 IV OVER 2 HOURS ON D1-D2, Q2W) - INTRAVENOUS NOS
     Route: 042
     Dates: start: 20020711, end: 20020712
  4. BEVACIZUMAB - SOLUTION - 10 MG/KG [Suspect]
     Dosage: 10 MG/KG Q2W - INTRAVENOUS NOS
     Route: 042
     Dates: start: 20020711, end: 20020711
  5. WARFARIN SODIUM [Concomitant]

REACTIONS (16)
  - ABDOMINAL PAIN [None]
  - BLOOD PRESSURE DECREASED [None]
  - BLOOD UREA INCREASED [None]
  - DEHYDRATION [None]
  - DISEASE PROGRESSION [None]
  - DYSSTASIA [None]
  - DYSURIA [None]
  - FALL [None]
  - GASTROINTESTINAL HAEMORRHAGE [None]
  - HAEMATEMESIS [None]
  - HAEMOGLOBIN DECREASED [None]
  - INFECTION [None]
  - NAUSEA [None]
  - URINARY RETENTION [None]
  - URINE OUTPUT DECREASED [None]
  - VOMITING [None]
